FAERS Safety Report 15764815 (Version 1)
Quarter: 2018Q4

REPORT INFORMATION
  Report Type: Spontaneous
  Country: US (occurrence: US)
  Receive Date: 20181207
  Receipt Date: 20181207
  Transmission Date: 20190205
  Serious: No
  Sender: FDA-Public Use
  Company Number: None

PATIENT
  Age: 47 Year
  Sex: Female
  Weight: 71.67 kg

DRUGS (1)
  1. CBD GUMMY BEAR [Suspect]
     Active Substance: CANNABIDIOL\HERBALS
     Indication: INSOMNIA
     Dates: start: 20181116, end: 20181202

REACTIONS (2)
  - Drug effect incomplete [None]
  - Abdominal discomfort [None]

NARRATIVE: CASE EVENT DATE: 20181116
